FAERS Safety Report 14608251 (Version 3)
Quarter: 2018Q2

REPORT INFORMATION
  Report Type: Other
  Country: ES (occurrence: ES)
  Receive Date: 20180307
  Receipt Date: 20180416
  Transmission Date: 20180711
  Serious: Yes (Life-Threatening, Hospitalization)
  Sender: FDA-Public Use
  Company Number: ES-GBPHLPEH-2018-PEL-003357

PATIENT

DRUGS (7)
  1. MANITOL [Suspect]
     Active Substance: MANNITOL
     Dosage: 2 BOLUS
     Route: 065
     Dates: start: 20180127
  2. SITAGLIPTIN [Suspect]
     Active Substance: SITAGLIPTIN
     Dosage: UNK
     Route: 065
  3. SEVOFLURANO PIRAMAL {100%} LIQUIDO PARA INHALACION DEL VAPOR [Suspect]
     Active Substance: SEVOFLURANE
     Indication: GENERAL ANAESTHESIA
     Dosage: UNK
     Route: 055
     Dates: start: 20180205, end: 20180205
  4. RANITIDINE. [Concomitant]
     Active Substance: RANITIDINE
     Dosage: UNK
     Route: 065
  5. ATORVASTATIN                       /01326102/ [Concomitant]
     Active Substance: ATORVASTATIN
     Dosage: UNK
     Route: 065
  6. METFORMIN [Suspect]
     Active Substance: METFORMIN HYDROCHLORIDE
     Indication: DIABETES MELLITUS
     Dosage: UNK
     Route: 065
  7. ACETAZOLAMIDE. [Suspect]
     Active Substance: ACETAZOLAMIDE
     Indication: GLAUCOMA
     Dosage: UNK
     Route: 048
     Dates: start: 20180127, end: 20180205

REACTIONS (8)
  - Arrhythmia [Unknown]
  - Metabolic acidosis [None]
  - Cardio-respiratory arrest [None]
  - Malaise [Unknown]
  - Cyanosis [Unknown]
  - Unresponsive to stimuli [Unknown]
  - Nausea [Unknown]
  - Coma [Unknown]

NARRATIVE: CASE EVENT DATE: 20180206
